FAERS Safety Report 7594072-3 (Version None)
Quarter: 2011Q3

REPORT INFORMATION
  Report Type: 
  Country: None (occurrence: None)
  Receive Date: 20110706
  Receipt Date: 20110627
  Transmission Date: 20111222
  Serious: Yes (Hospitalization, Other)
  Sender: FDA-Public Use
  Company Number: CA-ASTRAZENECA-2011SE39185

PATIENT
  Sex: Female

DRUGS (6)
  1. HYDREA [Concomitant]
     Route: 048
  2. NEXIUM [Suspect]
     Route: 048
     Dates: start: 20070101
  3. FRAGMIN [Concomitant]
  4. NUMEROUS OTHER MEDICAITONS [Concomitant]
     Route: 050
  5. PLAVIX [Concomitant]
     Route: 048
  6. HYDROMORPHINE [Concomitant]
     Route: 050

REACTIONS (7)
  - BRAIN STEM THROMBOSIS [None]
  - LOWER LIMB FRACTURE [None]
  - HOSPITALISATION [None]
  - THROMBOSIS [None]
  - SPINAL FRACTURE [None]
  - FALL [None]
  - INTERNAL FIXATION OF FRACTURE [None]
